FAERS Safety Report 19240295 (Version 1)
Quarter: 2021Q2

REPORT INFORMATION
  Report Type: Spontaneous
  Country: CN (occurrence: CN)
  Receive Date: 20210511
  Receipt Date: 20210511
  Transmission Date: 20210717
  Serious: Yes (Life-Threatening, Other)
  Sender: FDA-Public Use
  Company Number: CN-B.I. PHARMACEUTICALS,INC./RIDGEFIELD-2021-BI-102676

PATIENT
  Age: 74 Year
  Sex: Male

DRUGS (2)
  1. TRAJENTA [Suspect]
     Active Substance: LINAGLIPTIN
     Indication: BLOOD GLUCOSE DECREASED
     Route: 048
     Dates: start: 20210305, end: 20210424
  2. VOGLIBOSE [Concomitant]
     Active Substance: VOGLIBOSE
     Indication: BLOOD GLUCOSE DECREASED
     Route: 048
     Dates: start: 20210305, end: 20210424

REACTIONS (1)
  - Hypoglycaemic coma [Recovering/Resolving]

NARRATIVE: CASE EVENT DATE: 20210423
